FAERS Safety Report 7288670-4 (Version None)
Quarter: 2011Q1

REPORT INFORMATION
  Report Type: 
  Country: None (occurrence: None)
  Receive Date: 20110211
  Receipt Date: 20110201
  Transmission Date: 20110831
  Serious: No
  Sender: FDA-Public Use
  Company Number: B0698484A

PATIENT
  Age: 22 Year
  Sex: Female

DRUGS (3)
  1. RELENZA [Suspect]
     Route: 055
  2. CALONAL [Concomitant]
     Route: 065
  3. CHINESE MEDICINE [Concomitant]
     Route: 065

REACTIONS (1)
  - DRUG EXPOSURE DURING PREGNANCY [None]
